FAERS Safety Report 6675304-2 (Version None)
Quarter: 2010Q2

REPORT INFORMATION
  Report Type: 
  Country: None (occurrence: None)
  Receive Date: 20100409
  Receipt Date: 20100122
  Transmission Date: 20101027
  Serious: No
  Sender: FDA-Public Use
  Company Number: A0841009A

PATIENT
  Age: 44 Year
  Sex: Female

DRUGS (12)
  1. TYKERB [Suspect]
     Indication: BREAST CANCER
     Dosage: 5TAB PER DAY
     Route: 048
     Dates: start: 20091223
  2. LEXAPRO [Concomitant]
  3. IBUPROFEN [Concomitant]
  4. ALPRAZOLAM [Concomitant]
  5. LISINOPRIL [Concomitant]
  6. AMITRIPTYLINE HCL [Concomitant]
  7. METFORMIN (GLUCOPHAGE) [Concomitant]
  8. TAMOXIFEN CITRATE [Concomitant]
  9. JANUVIA [Concomitant]
  10. ONDANSETRON [Concomitant]
  11. SUMATRIPTAN SUCCINATE [Concomitant]
  12. HYDROCODONE BITARTRATE AND ACETAMINOPHEN [Concomitant]

REACTIONS (7)
  - ACNE [None]
  - CONTUSION [None]
  - DIARRHOEA [None]
  - FATIGUE [None]
  - GASTRIC CYST [None]
  - IMPAIRED HEALING [None]
  - SKIN CHAPPED [None]
